FAERS Safety Report 4614774-8 (Version None)
Quarter: 2005Q1

REPORT INFORMATION
  Report Type: 
  Country: None (occurrence: None)
  Receive Date: 20050322
  Receipt Date: 20050211
  Transmission Date: 20050727
  Serious: Yes (Other)
  Sender: FDA-Public Use
  Company Number: 200511484GDDC

PATIENT
  Age: 56 Year
  Sex: Female

DRUGS (8)
  1. ARAVA [Suspect]
     Indication: RHEUMATOID ARTHRITIS
     Route: 048
     Dates: start: 20040708, end: 20041201
  2. METHOTREXATE [Concomitant]
     Route: 048
     Dates: start: 19971215, end: 20050202
  3. FOLATE [Concomitant]
     Dosage: DOSE: UNK
  4. ATACAND [Concomitant]
     Dosage: DOSE: UNK
  5. CALCITRIOL [Concomitant]
     Dosage: DOSE: UNK
  6. LASIX [Concomitant]
     Dosage: DOSE: UNK
  7. PREDNISONE [Concomitant]
  8. THYROXINE [Concomitant]
     Dosage: DOSE: UNK

REACTIONS (2)
  - ALANINE AMINOTRANSFERASE INCREASED [None]
  - GAMMA-GLUTAMYLTRANSFERASE INCREASED [None]
